FAERS Safety Report 17926160 (Version 1)
Quarter: 2020Q2

REPORT INFORMATION
  Report Type: Spontaneous
  Country: BE (occurrence: BE)
  Receive Date: 20200623
  Receipt Date: 20200623
  Transmission Date: 20200714
  Serious: Yes (Other)
  Sender: FDA-Public Use
  Company Number: BE-ACCORD-182154

PATIENT
  Age: 83 Year
  Sex: Female
  Weight: 73.4 kg

DRUGS (17)
  1. ZYPREXA [Interacting]
     Active Substance: OLANZAPINE
     Indication: BEHAVIOUR DISORDER
     Dosage: 1/2 TABLET 2X/DAY TREATMENT WAS SUSPENDED
     Route: 048
     Dates: start: 20200407
  2. PROLOPA [Concomitant]
     Active Substance: BENSERAZIDE\LEVODOPA
     Dosage: 0.5 DF, QD
  3. MAGNETOP [Concomitant]
     Indication: SUPPLEMENTATION THERAPY
     Dosage: 450 MG, QD
     Route: 048
     Dates: start: 20200410
  4. KALIUM [Concomitant]
     Active Substance: POTASSIUM CHLORIDE
     Indication: SUPPLEMENTATION THERAPY
     Dosage: 600 MG
     Route: 048
     Dates: start: 20200409
  5. CLEXANE [Concomitant]
     Active Substance: ENOXAPARIN SODIUM
  6. PERINDOPRIL [Concomitant]
     Active Substance: PERINDOPRIL
     Dosage: 2 MG, QD
  7. ALGOSTASE MONO [Concomitant]
     Dosage: 1 DF, TID
  8. LEVOTHYROXINE. [Concomitant]
     Active Substance: LEVOTHYROXINE
     Dosage: 150 UG, QD
  9. PRADAXA [Concomitant]
     Active Substance: DABIGATRAN ETEXILATE MESYLATE
  10. UNI DIAMICRON [Concomitant]
     Active Substance: GLICLAZIDE
     Indication: DIABETES MELLITUS
     Dosage: 60 MG, BID
  11. TRAZODONE [Suspect]
     Active Substance: TRAZODONE HYDROCHLORIDE
     Indication: DEPRESSION
     Dosage: 1/4 TABLET IN THE MORNING AND AT NOON AND 1/2 TABLET IN THE EVENING
  12. PLAQUENIL [Interacting]
     Active Substance: HYDROXYCHLOROQUINE SULFATE
     Indication: PRODUCT USE IN UNAPPROVED INDICATION
     Dosage: DAY 1: 400MG 2X/D?DAY 2-4: 200MG 1X/D
     Route: 048
     Dates: start: 20200407, end: 20200411
  13. CONTRAMAL [Concomitant]
     Active Substance: TRAMADOL HYDROCHLORIDE
     Dosage: UNK UNK, PRN
  14. ZYPREXA [Interacting]
     Active Substance: OLANZAPINE
     Indication: BEHAVIOUR DISORDER
  15. MOVICOL [Concomitant]
     Active Substance: POLYETHYLENE GLYCOL 3350\POTASSIUM CHLORIDE\SODIUM BICARBONATE\SODIUM CHLORIDE
     Dosage: 1 DF, QD
  16. TRAZODONE [Interacting]
     Active Substance: TRAZODONE HYDROCHLORIDE
     Indication: DEPRESSION
  17. METFORMIN [Concomitant]
     Active Substance: METFORMIN HYDROCHLORIDE
     Indication: DIABETES MELLITUS
     Dosage: 500 MG, BID
     Dates: end: 20200401

REACTIONS (2)
  - Electrocardiogram QT prolonged [Recovering/Resolving]
  - Drug interaction [Unknown]

NARRATIVE: CASE EVENT DATE: 20200410
